FAERS Safety Report 25632037 (Version 1)
Quarter: 2025Q3

REPORT INFORMATION
  Report Type: Spontaneous
  Country: EU (occurrence: EU)
  Receive Date: 20250801
  Receipt Date: 20250801
  Transmission Date: 20251021
  Serious: Yes (Life-Threatening, Hospitalization)
  Sender: CHEPLAPHARM
  Company Number: None

PATIENT
  Age: 41 Year
  Sex: Female
  Weight: 105 kg

DRUGS (5)
  1. QUETIAPINE [Suspect]
     Active Substance: QUETIAPINE
     Indication: Depression
     Dosage: 1 A DAY (125MG ACCORDING TO PATIENT); 0-0-1?DAILY DOSE: 125 MILLIGRAM
     Route: 048
     Dates: start: 20231116
  2. CLONAZEPAM [Concomitant]
     Active Substance: CLONAZEPAM
     Dosage: 0-0-1?DAILY DOSE: 2 MILLIGRAM
     Route: 048
  3. PAROXETINE [Concomitant]
     Active Substance: PAROXETINE
     Dosage: 0-0-1?DAILY DOSE: 20 MILLIGRAM
     Route: 048
  4. METFORMIN [Concomitant]
     Active Substance: METFORMIN HYDROCHLORIDE
     Indication: Diabetes mellitus
     Dosage: 1-0-0?DAILY DOSE: 875 MILLIGRAM
     Route: 048
  5. EMPAGLIFLOZIN [Concomitant]
     Active Substance: EMPAGLIFLOZIN
     Indication: Diabetes mellitus
     Dosage: 1-0-0?DAILY DOSE: 10 MILLIGRAM
     Route: 048

REACTIONS (5)
  - Cerebral venous sinus thrombosis [Recovering/Resolving]
  - Diarrhoea [Unknown]
  - Microcytic anaemia [Unknown]
  - Macule [Unknown]
  - Hepatic steatosis [Unknown]

NARRATIVE: CASE EVENT DATE: 20250615
